FAERS Safety Report 8417168-2 (Version None)
Quarter: 2012Q2

REPORT INFORMATION
  Report Type: 
  Country: None (occurrence: None)
  Receive Date: 20120606
  Receipt Date: 20120525
  Transmission Date: 20120825
  Serious: Yes (Other)
  Sender: FDA-Public Use
  Company Number: JP-PFIZER INC-2012106667

PATIENT
  Age: 61 Year
  Sex: Male
  Weight: 71 kg

DRUGS (9)
  1. DIOVAN [Concomitant]
     Dosage: UNK
  2. DIOVAN [Concomitant]
     Dosage: UNK
     Route: 048
  3. GAMOFA [Concomitant]
     Dosage: UNK
  4. TEPRENONE [Concomitant]
     Dosage: UNK
  5. WARFARIN [Concomitant]
     Dosage: UNK
  6. AMLODIPINE BESILATE [Concomitant]
     Dosage: UNK
     Route: 048
  7. SUNRYTHM [Concomitant]
     Dosage: UNK
  8. LIPITOR [Suspect]
     Indication: DYSLIPIDAEMIA
     Dosage: 5 MG, 1X/DAY
     Route: 048
     Dates: end: 20120420
  9. BISOPROLOL FUMARATE [Concomitant]
     Dosage: UNK

REACTIONS (8)
  - BLOOD CREATINE PHOSPHOKINASE INCREASED [None]
  - PROTEIN URINE PRESENT [None]
  - RHABDOMYOLYSIS [None]
  - NEPHROTIC SYNDROME [None]
  - BLOOD CREATININE INCREASED [None]
  - BLOOD UREA INCREASED [None]
  - MYOGLOBIN BLOOD INCREASED [None]
  - BLOOD URINE PRESENT [None]
